FAERS Safety Report 5586183-9 (Version None)
Quarter: 2008Q1

REPORT INFORMATION
  Report Type: 
  Country: None (occurrence: None)
  Receive Date: 20080104
  Receipt Date: 20071226
  Transmission Date: 20080703
  Serious: Yes (Hospitalization)
  Sender: FDA-Public Use
  Company Number: 2007BI022257

PATIENT
  Age: 47 Year
  Sex: Female

DRUGS (8)
  1. TYSABRI [Suspect]
     Indication: MULTIPLE SCLEROSIS
     Dosage: 300 MG;QM;IV
     Route: 042
     Dates: start: 20070202, end: 20071015
  2. COLACE [Concomitant]
  3. OXYBUTIN [Concomitant]
  4. PROZAC [Concomitant]
  5. BACLOFEN [Concomitant]
  6. SENNA-GEN [Concomitant]
  7. COPAXONE [Concomitant]
  8. AZATHIOPRINE [Concomitant]

REACTIONS (14)
  - ANISOCYTOSIS [None]
  - APLASTIC ANAEMIA [None]
  - BALANCE DISORDER [None]
  - BLADDER SPASM [None]
  - DYSSTASIA [None]
  - EPSTEIN-BARR VIRUS ANTIGEN POSITIVE [None]
  - ESCHERICHIA URINARY TRACT INFECTION [None]
  - LYMPHOCYTE COUNT DECREASED [None]
  - MARROW HYPERPLASIA [None]
  - NEUTROPHIL PERCENTAGE INCREASED [None]
  - PROTHROMBIN TIME PROLONGED [None]
  - URINARY TRACT INFECTION ENTEROCOCCAL [None]
  - VIRUS SEROLOGY TEST POSITIVE [None]
  - VOMITING [None]
